FAERS Safety Report 9885437 (Version 4)
Quarter: 2014Q2

REPORT INFORMATION
  Report Type: Spontaneous
  Country: US (occurrence: US)
  Receive Date: 20140210
  Receipt Date: 20140509
  Transmission Date: 20141212
  Serious: Yes (Death, Hospitalization, Other)
  Sender: FDA-Public Use
  Company Number: US-SA-2014SA014552

PATIENT
  Age: 18 Month
  Sex: Male

DRUGS (1)
  1. CEREZYME [Suspect]
     Indication: GAUCHER^S DISEASE
     Dosage: DOSE:400 UNIT(S)
     Route: 042
     Dates: start: 20131010

REACTIONS (6)
  - Death [Fatal]
  - Cardiac arrest [Unknown]
  - Hospitalisation [Recovered/Resolved]
  - Choking [Not Recovered/Not Resolved]
  - Apnoea [Unknown]
  - Cyanosis [Unknown]
